FAERS Safety Report 9671847 (Version 1)
Quarter: 2013Q4

REPORT INFORMATION
  Report Type: Spontaneous
  Country: FR (occurrence: FR)
  Receive Date: 20131106
  Receipt Date: 20131106
  Transmission Date: 20140711
  Serious: Yes (Hospitalization, Other)
  Sender: FDA-Public Use
  Company Number: FR-009507513-1310FRA013082

PATIENT
  Age: 51 Year
  Sex: Male

DRUGS (23)
  1. TIENAM 500MG/500MG, POUDRE POUR PERFUSION [Suspect]
     Dosage: UNK
     Route: 042
     Dates: start: 20130916, end: 20130919
  2. INEXIUM [Suspect]
     Dosage: UNK
     Route: 048
     Dates: start: 20130910, end: 20130919
  3. TAZOCILLINE [Suspect]
     Dosage: UNK
     Dates: start: 20130906, end: 20130913
  4. AXEPIM [Concomitant]
     Dosage: UNK
     Dates: start: 20130913, end: 20130916
  5. AZACTAM [Concomitant]
     Dosage: UNK
     Dates: start: 20130918
  6. FLAGYL [Concomitant]
     Dosage: UNK
     Dates: start: 20130918
  7. VANCOMYCIN [Concomitant]
     Dosage: UNK
     Dates: start: 20130907, end: 20130916
  8. VFEND [Concomitant]
     Dosage: UNK
     Dates: start: 20130916
  9. ZYVOXID [Concomitant]
     Dosage: UNK
     Dates: start: 20130916
  10. ZOVIRAX [Concomitant]
     Dosage: UNK
     Dates: start: 20130902
  11. CYCLOSPORINE [Concomitant]
     Dosage: UNK
     Dates: start: 20130905, end: 20130915
  12. SOLU-MEDROL [Concomitant]
     Dosage: UNK
     Dates: start: 20130915
  13. MYCAMINE [Concomitant]
     Dosage: UNK
     Dates: end: 20130903
  14. AMBISOME [Concomitant]
     Dosage: UNK
     Dates: start: 20130911, end: 20130914
  15. HEPARIN SODIUM [Concomitant]
     Dosage: UNK
     Dates: start: 20130831
  16. BACTRIM [Concomitant]
  17. SPECIAFOLDINE [Concomitant]
  18. MOTILIUM [Concomitant]
  19. NEURONTIN [Concomitant]
  20. TOPALGIC (SUPROFEN) [Concomitant]
  21. LOXEN [Concomitant]
  22. EFFEXOR [Concomitant]
  23. STILNOX [Concomitant]

REACTIONS (2)
  - Toxic skin eruption [Not Recovered/Not Resolved]
  - Renal failure [Not Recovered/Not Resolved]
